FAERS Safety Report 16780644 (Version 1)
Quarter: 2019Q3

REPORT INFORMATION
  Report Type: Spontaneous
  Country: MX (occurrence: MX)
  Receive Date: 20190906
  Receipt Date: 20190906
  Transmission Date: 20191005
  Serious: Yes (Other)
  Sender: FDA-Public Use
  Company Number: MX-ASTRAZENECA-2019SE72624

PATIENT
  Age: 735 Month
  Sex: Female
  Weight: 70 kg

DRUGS (6)
  1. AMLODOPINO [Concomitant]
     Indication: HYPERTENSION
     Route: 048
     Dates: start: 201901
  2. XIGDUO XR [Interacting]
     Active Substance: DAPAGLIFLOZIN PROPANEDIOL\METFORMIN HYDROCHLORIDE
     Indication: TYPE 2 DIABETES MELLITUS
     Dosage: 10/1000 MG, 10 MG DAILY
     Route: 048
     Dates: start: 20190402
  3. XIGDUO XR [Suspect]
     Active Substance: DAPAGLIFLOZIN PROPANEDIOL\METFORMIN HYDROCHLORIDE
     Indication: TYPE 2 DIABETES MELLITUS
     Dosage: 10/1000 MG, 10 MG EVERY 12 HOURS
     Route: 048
     Dates: start: 201901, end: 20190401
  4. CONCOR [Interacting]
     Active Substance: BISOPROLOL FUMARATE
     Indication: HYPERTENSION
     Route: 048
     Dates: start: 201901
  5. METFORMINA [Concomitant]
     Active Substance: METFORMIN HYDROCHLORIDE
     Indication: DIABETES MELLITUS
     Route: 048
     Dates: start: 201901
  6. ASPIRINA PROTECT [Concomitant]
     Active Substance: ASPIRIN
     Indication: HYPERTENSION
     Route: 048
     Dates: start: 201902

REACTIONS (14)
  - Drug interaction [Not Recovered/Not Resolved]
  - Varicose vein [Not Recovered/Not Resolved]
  - Weight increased [Unknown]
  - Nephrolithiasis [Not Recovered/Not Resolved]
  - Weight decreased [Recovered/Resolved]
  - Blood glucose increased [Not Recovered/Not Resolved]
  - Kidney infection [Not Recovered/Not Resolved]
  - Dyspepsia [Recovered/Resolved]
  - Blood glucose decreased [Recovered/Resolved]
  - Peripheral swelling [Recovered/Resolved]
  - Fatigue [Recovered/Resolved]
  - Overdose [Recovered/Resolved]
  - Amnesia [Not Recovered/Not Resolved]
  - Circumstance or information capable of leading to medication error [Not Recovered/Not Resolved]

NARRATIVE: CASE EVENT DATE: 201901
